FAERS Safety Report 19718602 (Version 1)
Quarter: 2021Q3

REPORT INFORMATION
  Report Type: Spontaneous
  Country: US (occurrence: US)
  Receive Date: 20210818
  Receipt Date: 20210818
  Transmission Date: 20211014
  Serious: Yes (Hospitalization)
  Sender: FDA-Public Use
  Company Number: None

PATIENT
  Age: 41 Year
  Sex: Female

DRUGS (8)
  1. GABAPENTIN. [Concomitant]
     Active Substance: GABAPENTIN
  2. PROCRIT [Suspect]
     Active Substance: ERYTHROPOIETIN
     Indication: RAYNAUD^S PHENOMENON
     Dosage: ?          OTHER FREQUENCY:WEEKLY;?
     Route: 058
     Dates: start: 20200206
  3. LAMOTRIGINE, [Concomitant]
  4. PREDISONE [Concomitant]
     Active Substance: PREDNISONE
  5. METHENAM [Concomitant]
  6. PHENOBARB [Concomitant]
     Active Substance: PHENOBARBITAL SODIUM
  7. TACROLIMUS. [Suspect]
     Active Substance: TACROLIMUS
     Indication: RAYNAUD^S PHENOMENON
     Route: 048
     Dates: start: 20200702
  8. PANTOPRAZOLE [Concomitant]
     Active Substance: PANTOPRAZOLE

REACTIONS (2)
  - Urinary tract infection [None]
  - Cellulitis [None]

NARRATIVE: CASE EVENT DATE: 20210808
